FAERS Safety Report 23193421 (Version 1)
Quarter: 2023Q4

REPORT INFORMATION
  Report Type: Spontaneous
  Country: US (occurrence: None)
  Receive Date: 20231115
  Receipt Date: 20231115
  Transmission Date: 20240109
  Serious: Yes (Hospitalization)
  Sender: FDA-Public Use
  Company Number: None

PATIENT
  Sex: Male

DRUGS (7)
  1. VELETRI [Suspect]
     Active Substance: EPOPROSTENOL
     Indication: Pulmonary arterial hypertension
     Dosage: OTHER QUANTITY : 8 NKM;?OTHER FREQUENCY : EVERY 24 HOURS;?
     Dates: start: 202305
  2. SODIUM CHLORIDE [Concomitant]
     Active Substance: SODIUM CHLORIDE
  3. HEPARIN L.F SYR [Concomitant]
  4. OFEV [Concomitant]
     Active Substance: NINTEDANIB
  5. SODIUM CHLORIDE [Concomitant]
     Active Substance: SODIUM CHLORIDE
  6. SILDENAFIL CITRATE [Concomitant]
     Active Substance: SILDENAFIL CITRATE
  7. OPSUMIT [Concomitant]
     Active Substance: MACITENTAN

REACTIONS (9)
  - Nasal congestion [None]
  - Rhinorrhoea [None]
  - Epistaxis [None]
  - Back pain [None]
  - Fatigue [None]
  - Decreased appetite [None]
  - Haemoglobin decreased [None]
  - Complication associated with device [None]
  - Device dislocation [None]
